FAERS Safety Report 4485327-X (Version None)
Quarter: 2004Q4

REPORT INFORMATION
  Report Type: 
  Country: None (occurrence: None)
  Receive Date: 20041021
  Receipt Date: 20041008
  Transmission Date: 20050328
  Serious: Yes (Hospitalization)
  Sender: FDA-Public Use
  Company Number: 2004UW21543

PATIENT
  Sex: 0

DRUGS (1)
  1. IRESSA [Suspect]

REACTIONS (1)
  - RENAL FAILURE [None]
